FAERS Safety Report 6232335-4 (Version None)
Quarter: 2009Q2

REPORT INFORMATION
  Report Type: 
  Country: None (occurrence: None)
  Receive Date: 20090617
  Receipt Date: 20090612
  Transmission Date: 20091009
  Serious: Yes (Hospitalization)
  Sender: FDA-Public Use
  Company Number: JP-WYE-H09757009

PATIENT

DRUGS (2)
  1. ZOSYN [Suspect]
     Dosage: 9 GRAMS DAILY
     Route: 042
     Dates: start: 20090603
  2. FINIBAX [Concomitant]
     Dosage: UNKNOWN

REACTIONS (2)
  - INTERSTITIAL LUNG DISEASE [None]
  - PULMONARY ALVEOLAR HAEMORRHAGE [None]
